FAERS Safety Report 12587539 (Version 1)
Quarter: 2016Q3

REPORT INFORMATION
  Report Type: Spontaneous
  Country: US (occurrence: US)
  Receive Date: 20160725
  Receipt Date: 20160725
  Transmission Date: 20161109
  Serious: No
  Sender: FDA-Public Use
  Company Number: US-BAYER-2016-138673

PATIENT
  Age: 60 Year
  Sex: Male
  Weight: 81.63 kg

DRUGS (6)
  1. MIRALAX [Suspect]
     Active Substance: POLYETHYLENE GLYCOL 3350
     Indication: CONSTIPATION
     Dosage: UNK UNK, QD
     Route: 048
  2. MULTAQ [Concomitant]
     Active Substance: DRONEDARONE
  3. LEVOTHYROXINE. [Concomitant]
     Active Substance: LEVOTHYROXINE
  4. COENZYME Q10 [Concomitant]
     Active Substance: UBIDECARENONE
  5. WARFARIN [Concomitant]
     Active Substance: WARFARIN
  6. ATORVASTATIN [Concomitant]
     Active Substance: ATORVASTATIN

REACTIONS (1)
  - Product use issue [None]
